FAERS Safety Report 17328331 (Version 2)
Quarter: 2020Q1

REPORT INFORMATION
  Report Type: Spontaneous
  Country: US (occurrence: US)
  Receive Date: 20200127
  Receipt Date: 20200203
  Transmission Date: 20200409
  Serious: Yes (Other)
  Sender: FDA-Public Use
  Company Number: US-PFIZER INC-2020034171

PATIENT
  Age: 36 Year
  Sex: Female
  Weight: 45.35 kg

DRUGS (1)
  1. LOMOTIL [Suspect]
     Active Substance: ATROPINE SULFATE\DIPHENOXYLATE HYDROCHLORIDE
     Indication: DIGESTIVE ENZYME ABNORMAL
     Dosage: UNK, DAILY
     Route: 048
     Dates: start: 1980

REACTIONS (9)
  - Product use in unapproved indication [Unknown]
  - Drug dependence [Unknown]
  - Incorrect product administration duration [Unknown]
  - Off label use [Unknown]
  - Asthma [Unknown]
  - Eczema [Unknown]
  - Disease recurrence [Unknown]
  - Thyroid disorder [Unknown]
  - Alopecia [Unknown]

NARRATIVE: CASE EVENT DATE: 1980
